FAERS Safety Report 14681206 (Version 1)
Quarter: 2018Q1

REPORT INFORMATION
  Report Type: Report from Study
  Country: US (occurrence: US)
  Receive Date: 20180326
  Receipt Date: 20180326
  Transmission Date: 20180509
  Serious: Yes (Other)
  Sender: FDA-Public Use
  Company Number: US-ALEXION PHARMACEUTICALS INC.-A201803263

PATIENT
  Sex: Female

DRUGS (1)
  1. SOLIRIS [Suspect]
     Active Substance: ECULIZUMAB
     Indication: PRODUCT USED FOR UNKNOWN INDICATION
     Route: 065

REACTIONS (7)
  - Pericardial effusion [Unknown]
  - Dyspnoea exertional [Unknown]
  - Renal disorder [Unknown]
  - Pleural effusion [Unknown]
  - Chest discomfort [Unknown]
  - Pulmonary fibrosis [Unknown]
  - Tachycardia [Unknown]
